FAERS Safety Report 10502471 (Version 2)
Quarter: 2014Q4

REPORT INFORMATION
  Report Type: Spontaneous
  Country: US (occurrence: US)
  Receive Date: 20141007
  Receipt Date: 20141106
  Transmission Date: 20150528
  Serious: Yes (Hospitalization, Other)
  Sender: FDA-Public Use
  Company Number: US-BRISTOL-MYERS SQUIBB COMPANY-21459979

PATIENT
  Age: 15 Year
  Sex: Male

DRUGS (1)
  1. ABILIFY [Suspect]
     Active Substance: ARIPIPRAZOLE
     Dates: start: 2014

REACTIONS (4)
  - Hallucination, visual [Unknown]
  - Dystonia [Recovered/Resolved]
  - Dyspnoea [Unknown]
  - Soliloquy [Unknown]

NARRATIVE: CASE EVENT DATE: 20140930
